FAERS Safety Report 9747594 (Version 1)
Quarter: 2013Q4

REPORT INFORMATION
  Report Type: Spontaneous
  Country: US (occurrence: None)
  Receive Date: 20131211
  Receipt Date: 20131211
  Transmission Date: 20140711
  Serious: No
  Sender: FDA-Public Use
  Company Number: None

PATIENT
  Age: 75 Year
  Sex: Female
  Weight: 49.9 kg

DRUGS (11)
  1. PROLIA [Suspect]
     Indication: OSTEOPOROSIS
     Dosage: 1 INJECTION ?1SHOT?INJECTION IN 24 HR
  2. LISINPRIL [Concomitant]
  3. EVISTA [Concomitant]
  4. CALCIUM [Concomitant]
  5. CITALOPRAM [Concomitant]
  6. VITAMINS [Concomitant]
  7. VIT D3 [Concomitant]
  8. ACIDOPHILAS [Concomitant]
  9. BABY ASPIRIN [Concomitant]
  10. MULTIVITAMIN [Concomitant]
  11. CITILUM CITRATE [Concomitant]

REACTIONS (6)
  - Rash erythematous [None]
  - Swelling face [None]
  - Discomfort [None]
  - Feeling hot [None]
  - Pyrexia [None]
  - Anxiety [None]
